FAERS Safety Report 9994709 (Version 1)
Quarter: 2014Q1

REPORT INFORMATION
  Report Type: Spontaneous
  Country: US (occurrence: None)
  Receive Date: 20140306
  Receipt Date: 20140306
  Transmission Date: 20141002
  Serious: Yes (Other)
  Sender: FDA-Public Use
  Company Number: 2014EXPUS00040

PATIENT
  Sex: Female

DRUGS (1)
  1. EXPAREL [Suspect]
     Indication: POSTOPERATIVE ANALGESIA
     Dates: start: 20140217, end: 20140217

REACTIONS (4)
  - Bradycardia [None]
  - Arthralgia [None]
  - Atrial fibrillation [None]
  - Nausea [None]
